FAERS Safety Report 8002554-5 (Version None)
Quarter: 2011Q4

REPORT INFORMATION
  Report Type: 
  Country: None (occurrence: None)
  Receive Date: 20111222
  Receipt Date: 20111212
  Transmission Date: 20120403
  Serious: Yes (Other)
  Sender: FDA-Public Use
  Company Number: US-SANOFI-AVENTIS-2011SA082302

PATIENT
  Age: 52 Year
  Sex: Male

DRUGS (10)
  1. CLOPIDOGREL BISULFATE [Suspect]
     Route: 048
  2. PACLITAXEL [Suspect]
     Indication: PERCUTANEOUS CORONARY INTERVENTION
     Route: 065
  3. CLOPIDOGREL BISULFATE [Suspect]
     Indication: PERCUTANEOUS CORONARY INTERVENTION
     Route: 048
  4. ACETYLSALICYLIC ACID SRT [Suspect]
     Indication: PERCUTANEOUS CORONARY INTERVENTION
     Route: 065
  5. CLOPIDOGREL BISULFATE [Suspect]
     Route: 065
  6. ANGIOMAX [Suspect]
     Indication: PERCUTANEOUS CORONARY INTERVENTION
     Route: 042
  7. SIROLIMUS [Suspect]
     Indication: PERCUTANEOUS CORONARY INTERVENTION
     Route: 065
  8. CLOPIDOGREL BISULFATE [Suspect]
     Route: 065
  9. ACETYLSALICYLIC ACID SRT [Suspect]
     Route: 065
  10. CALCIUM HYPOPHOSPHITE AND ACEGLUTAMIDE AND CHOLINE CHLORIDE AND FERROU [Suspect]
     Indication: PERCUTANEOUS CORONARY INTERVENTION
     Route: 065

REACTIONS (9)
  - INFLAMMATION [None]
  - DYSPNOEA [None]
  - HYPERHIDROSIS [None]
  - HYPERTENSION [None]
  - MYOCARDIAL INFARCTION [None]
  - CHEST DISCOMFORT [None]
  - THROMBOSIS IN DEVICE [None]
  - ELECTROCARDIOGRAM CHANGE [None]
  - CARDIAC ENZYMES INCREASED [None]
